FAERS Safety Report 4340234-8 (Version None)
Quarter: 2004Q1

REPORT INFORMATION
  Report Type: 
  Country: None (occurrence: None)
  Receive Date: 20040329
  Receipt Date: 20031229
  Transmission Date: 20041129
  Serious: No
  Sender: FDA-Public Use
  Company Number: 03P-163-0245920-00

PATIENT
  Age: 59 Year
  Sex: Female
  Weight: 68.9467 kg

DRUGS (5)
  1. HUMIRA [Suspect]
     Dosage: 40 MG, 1 IN 2 WK, SUBCUTANEOUS
     Route: 058
     Dates: start: 20031014
  2. METHOTREXATE [Concomitant]
  3. INDOMETHACIN [Concomitant]
  4. PROPACET 100 [Concomitant]
  5. INFLUENZA VACCINE [Concomitant]

REACTIONS (4)
  - ARTHRALGIA [None]
  - DYSSTASIA [None]
  - INJECTION SITE ERYTHEMA [None]
  - PAIN IN EXTREMITY [None]
